FAERS Safety Report 4681797-2 (Version None)
Quarter: 2005Q2

REPORT INFORMATION
  Report Type: 
  Country: None (occurrence: None)
  Receive Date: 20050601
  Receipt Date: 20041119
  Transmission Date: 20051028
  Serious: Yes (Hospitalization)
  Sender: FDA-Public Use
  Company Number: 2004234349US

PATIENT
  Age: 68 Year
  Sex: Male
  Weight: 64.8644 kg

DRUGS (13)
  1. ZYVOX [Suspect]
     Indication: WOUND INFECTION
     Dosage: 1200 MG (600 MG 2  IN 1 D) ORAL
     Route: 048
     Dates: start: 20040101, end: 20040101
  2. NEORAL [Concomitant]
  3. CELLCEPT [Concomitant]
  4. PREDNISONE [Concomitant]
  5. CARDIZEM [Concomitant]
  6. PRAVACHOL [Concomitant]
  7. PEPCID [Concomitant]
  8. MULTIVITAMIN [Concomitant]
  9. BACTRIM [Concomitant]
  10. LEVAQUIN [Concomitant]
  11. FLUCONAZOLE [Concomitant]
  12. INSULIN [Concomitant]
  13. ROCEPHIN [Concomitant]

REACTIONS (7)
  - DIZZINESS [None]
  - FALL [None]
  - LOSS OF CONSCIOUSNESS [None]
  - RETCHING [None]
  - TREMOR [None]
  - VOMITING [None]
  - WEIGHT DECREASED [None]
